FAERS Safety Report 19570499 (Version 2)
Quarter: 2021Q3

REPORT INFORMATION
  Report Type: Spontaneous
  Country: JP (occurrence: JP)
  Receive Date: 20210716
  Receipt Date: 20210723
  Transmission Date: 20211014
  Serious: Yes (Hospitalization, Other)
  Sender: FDA-Public Use
  Company Number: JP-BRISTOL-MYERS SQUIBB COMPANY-BMS-2021-069291

PATIENT
  Age: 70 Year
  Sex: Male

DRUGS (1)
  1. OPDIVO [Suspect]
     Active Substance: NIVOLUMAB
     Indication: GASTRIC CANCER
     Dosage: 240 MG, Q2W
     Route: 041

REACTIONS (6)
  - Bile duct stone [Recovering/Resolving]
  - Cholangitis [Recovering/Resolving]
  - Malignant neoplasm progression [Unknown]
  - Bile duct stenosis [Recovering/Resolving]
  - Pneumobilia [Unknown]
  - Pyrexia [Recovered/Resolved]
